FAERS Safety Report 6287405-1 (Version None)
Quarter: 2009Q3

REPORT INFORMATION
  Report Type: 
  Country: None (occurrence: None)
  Receive Date: 20090727
  Receipt Date: 20090714
  Transmission Date: 20100115
  Serious: Yes (Hospitalization)
  Sender: FDA-Public Use
  Company Number: 2009-02658

PATIENT
  Age: 59 Year
  Sex: Female
  Weight: 60 kg

DRUGS (2)
  1. VELCADE [Suspect]
     Indication: MULTIPLE MYELOMA
     Dosage: 2.15 MG, INTRAVENOUS
     Route: 042
     Dates: start: 20080813, end: 20090108
  2. ACYCLOVIR [Concomitant]

REACTIONS (4)
  - DEAFNESS [None]
  - NASOPHARYNGITIS [None]
  - OTITIS MEDIA ACUTE [None]
  - TINNITUS [None]
